FAERS Safety Report 7319869-6 (Version None)
Quarter: 2011Q1

REPORT INFORMATION
  Report Type: 
  Country: None (occurrence: None)
  Receive Date: 20110228
  Receipt Date: 20101103
  Transmission Date: 20110831
  Serious: No
  Sender: FDA-Public Use
  Company Number: A0890546A

PATIENT
  Age: 47 Year
  Sex: Female

DRUGS (4)
  1. CYMBALTA [Concomitant]
  2. LAMOTRIGINE [Suspect]
     Indication: BIPOLAR DISORDER
     Dosage: 25MG PER DAY
     Route: 048
     Dates: start: 20101025
  3. MOBIC [Concomitant]
  4. MACROBID [Concomitant]

REACTIONS (5)
  - PAIN [None]
  - PRURITUS [None]
  - RASH [None]
  - RASH ERYTHEMATOUS [None]
  - TINEA INFECTION [None]
